FAERS Safety Report 9456691 (Version 1)
Quarter: 2013Q3

REPORT INFORMATION
  Report Type: Spontaneous
  Country: US (occurrence: US)
  Receive Date: 20130813
  Receipt Date: 20130813
  Transmission Date: 20140515
  Serious: No
  Sender: FDA-Public Use
  Company Number: US-EISAI INC-AP356-00055-SPO-US

PATIENT
  Age: 72 Year
  Sex: Male

DRUGS (5)
  1. BELVIQ (LORCASERIN HYDROCHLORIDE) [Suspect]
     Indication: WEIGHT DECREASED
     Route: 048
     Dates: start: 20130619, end: 20130708
  2. TRADJENTA [Concomitant]
     Indication: DIABETES MELLITUS MANAGEMENT
     Dates: start: 2013
  3. LISINOPRIL [Concomitant]
  4. CARVEDILOL [Concomitant]
  5. GLIMEPIRIDE [Concomitant]

REACTIONS (9)
  - Abnormal dreams [Recovered/Resolved]
  - Dizziness [Recovered/Resolved]
  - Depression [Recovered/Resolved]
  - Dry mouth [Recovered/Resolved]
  - Fatigue [Recovered/Resolved]
  - Headache [Recovered/Resolved]
  - Back pain [Recovered/Resolved]
  - Cough [Recovered/Resolved]
  - Insomnia [Recovered/Resolved]
